FAERS Safety Report 11168746 (Version 1)
Quarter: 2015Q2

REPORT INFORMATION
  Report Type: Spontaneous
  Country: DK (occurrence: SE)
  Receive Date: 20150605
  Receipt Date: 20150605
  Transmission Date: 20150821
  Serious: Yes (Hospitalization)
  Sender: FDA-Public Use
  Company Number: SE-FRI-1000077240

PATIENT
  Age: 82 Year
  Sex: Male

DRUGS (3)
  1. ASASANTIN RETARD [Concomitant]
     Active Substance: ASPIRIN\DIPYRIDAMOLE
     Route: 065
  2. TROMBYL [Concomitant]
     Active Substance: ASPIRIN
     Route: 065
  3. MEMANTINE [Suspect]
     Active Substance: MEMANTINE
     Route: 065
     Dates: end: 201411

REACTIONS (1)
  - Syncope [Unknown]

NARRATIVE: CASE EVENT DATE: 201410
